FAERS Safety Report 10103250 (Version 2)
Quarter: 2014Q2

REPORT INFORMATION
  Report Type: Spontaneous
  Country: FR (occurrence: FR)
  Receive Date: 20140424
  Receipt Date: 20140520
  Transmission Date: 20141212
  Serious: Yes (Hospitalization, Other)
  Sender: FDA-Public Use
  Company Number: FR-VIIV HEALTHCARE LIMITED-B0985962A

PATIENT
  Age: 44 Year
  Sex: Female

DRUGS (5)
  1. ZIAGEN [Suspect]
     Indication: HIV INFECTION
     Route: 048
     Dates: start: 20140328, end: 20140331
  2. TIVICAY [Concomitant]
     Indication: HIV INFECTION
     Route: 048
     Dates: start: 20140328
  3. RETROVIR [Concomitant]
     Indication: HIV INFECTION
     Route: 065
     Dates: end: 201403
  4. ALPRAZOLAM [Concomitant]
     Indication: PRODUCT USED FOR UNKNOWN INDICATION
     Route: 065
  5. EMTRIVA [Concomitant]
     Indication: HIV INFECTION
     Route: 065
     Dates: end: 201403

REACTIONS (7)
  - Meningism [Recovered/Resolved]
  - Headache [Recovered/Resolved]
  - Musculoskeletal stiffness [Recovered/Resolved]
  - Phonophobia [Recovered/Resolved]
  - Photophobia [Recovered/Resolved]
  - Hyperthermia [Recovered/Resolved]
  - Drug hypersensitivity [Recovered/Resolved]
